FAERS Safety Report 10853777 (Version 1)
Quarter: 2015Q1

REPORT INFORMATION
  Report Type: Spontaneous
  Country: US (occurrence: US)
  Receive Date: 20150223
  Receipt Date: 20150223
  Transmission Date: 20150721
  Serious: No
  Sender: FDA-Public Use
  Company Number: US-ELI_LILLY_AND_COMPANY-US201502006721

PATIENT
  Sex: Female

DRUGS (4)
  1. TADALAFIL-PSP [Suspect]
     Active Substance: TADALAFIL
     Dosage: 20 MG, QD
     Dates: start: 20140623, end: 20140701
  2. REMODULIN [Suspect]
     Active Substance: TREPROSTINIL
     Indication: PULMONARY HYPERTENSION
     Dosage: 10 MG, QD
     Route: 058
     Dates: start: 20130926
  3. TADALAFIL-PSP [Suspect]
     Active Substance: TADALAFIL
     Dosage: 10 MG, QD
     Dates: start: 20140702
  4. TADALAFIL-PSP [Suspect]
     Active Substance: TADALAFIL
     Indication: PRODUCT USED FOR UNKNOWN INDICATION
     Dosage: 40 MG, QD
     Dates: start: 20140617, end: 20140622

REACTIONS (6)
  - Sinus congestion [Unknown]
  - Eye swelling [Unknown]
  - Wrong technique in drug usage process [Unknown]
  - Ocular hyperaemia [Unknown]
  - Weight increased [Unknown]
  - Swelling [Unknown]
